FAERS Safety Report 11323636 (Version 16)
Quarter: 2021Q3

REPORT INFORMATION
  Report Type: Report from Study
  Country: JP (occurrence: JP)
  Receive Date: 20150730
  Receipt Date: 20210721
  Transmission Date: 20211014
  Serious: Yes (Hospitalization, Other)
  Sender: FDA-Public Use
  Company Number: JP-GLAXOSMITHKLINE INC.-JP2015JPN102901

PATIENT
  Age: 52 Year
  Sex: Male

DRUGS (31)
  1. ZITHROMAC [Suspect]
     Active Substance: AZITHROMYCIN DIHYDRATE
     Dosage: 600 MG, QD
     Route: 065
     Dates: start: 20110305, end: 20111227
  2. VALIXA [Suspect]
     Active Substance: VALGANCICLOVIR
     Dosage: 450 MG, BID
     Route: 048
     Dates: start: 20110219, end: 20110726
  3. TRIAZOLAM TABLETS [Concomitant]
     Active Substance: TRIAZOLAM
     Dosage: UNK
  4. DOLUTEGRAVIR [Suspect]
     Active Substance: DOLUTEGRAVIR
     Indication: HIV INFECTION
     Dosage: 50 MG, UNK
     Route: 048
     Dates: start: 20150116, end: 20150508
  5. TRUVADA [Suspect]
     Active Substance: EMTRICITABINE\TENOFOVIR DISOPROXIL FUMARATE
     Indication: HIV INFECTION
     Dosage: 1 DF, 1D
     Route: 048
     Dates: start: 20110121, end: 20120110
  6. VALIXA [Suspect]
     Active Substance: VALGANCICLOVIR
     Dosage: 450 MG, BID
     Route: 048
     Dates: start: 20111019, end: 20111125
  7. FOSAMAC [Suspect]
     Active Substance: ALENDRONATE SODIUM
     Route: 048
  8. BEZATOL [Suspect]
     Active Substance: BEZAFIBRATE
     Dosage: 900 MG, BID
     Route: 048
     Dates: start: 20110109, end: 20110218
  9. BEZATOL [Suspect]
     Active Substance: BEZAFIBRATE
     Dosage: 450 MG, BID
     Route: 048
     Dates: start: 20120118, end: 20120222
  10. VALIXA [Suspect]
     Active Substance: VALGANCICLOVIR
     Dosage: 450 MG, BID
     Route: 048
     Dates: start: 20111209, end: 20111228
  11. VALIXA [Suspect]
     Active Substance: VALGANCICLOVIR
     Dosage: 450 MG, BID
     Route: 048
     Dates: start: 20120118, end: 20120222
  12. ABACAVIRSULPHATE+DOLUTEGRAVIR+LAMIVUDINE [Suspect]
     Active Substance: ABACAVIR SULFATE\DOLUTEGRAVIR SODIUM\LAMIVUDINE
     Indication: HIV INFECTION
     Dosage: 1 DF, 1D
     Route: 048
     Dates: start: 20150509
  13. ZITHROMAC [Suspect]
     Active Substance: AZITHROMYCIN DIHYDRATE
     Dosage: 500 MG, QD
     Route: 065
     Dates: start: 20111228, end: 20130123
  14. NORVIR [Suspect]
     Active Substance: RITONAVIR
     Indication: HIV INFECTION
     Dosage: 100 MG, UNK
     Route: 048
     Dates: start: 20110121, end: 20150115
  15. BEZATOL [Suspect]
     Active Substance: BEZAFIBRATE
     Dosage: 900 MG, BID
     Route: 048
     Dates: start: 20110929, end: 20111004
  16. MYSLEE [Concomitant]
     Active Substance: ZOLPIDEM TARTRATE
     Indication: INSOMNIA
     Dosage: 5 MG, QD
     Dates: start: 20140401
  17. PREZISTA [Suspect]
     Active Substance: DARUNAVIR ETHANOLATE
     Indication: HIV INFECTION
     Dosage: 800 MG, QD
     Route: 048
     Dates: start: 20110121, end: 20150115
  18. MUCOSTA [Concomitant]
     Active Substance: REBAMIPIDE
     Indication: PROPHYLAXIS
     Dosage: 100 MG, TID
     Dates: start: 20160506
  19. MYCOBUTIN [Concomitant]
     Active Substance: RIFABUTIN
     Dosage: 150 MG, UNK
     Dates: start: 20110305, end: 20111227
  20. SULPHAMETHOXAZOLE + TRIMETHOPRIM [Suspect]
     Active Substance: SULFAMETHOXAZOLE\TRIMETHOPRIM
     Route: 065
  21. BEZATOL [Suspect]
     Active Substance: BEZAFIBRATE
     Dosage: 450 MG, BID
     Route: 048
     Dates: start: 20110219, end: 20110914
  22. BEZATOL [Suspect]
     Active Substance: BEZAFIBRATE
     Dosage: 450 MG, BID
     Route: 048
     Dates: start: 20111019, end: 20111125
  23. VALIXA [Suspect]
     Active Substance: VALGANCICLOVIR
     Dosage: 900 MG, BID
     Route: 048
     Dates: start: 20110109, end: 20110218
  24. ZITHROMAC [Suspect]
     Active Substance: AZITHROMYCIN DIHYDRATE
     Dosage: 1200 MG, WE
     Route: 065
     Dates: start: 20110107, end: 20110304
  25. BAKTAR [Suspect]
     Active Substance: SULFAMETHOXAZOLE\TRIMETHOPRIM
     Route: 048
  26. BEZATOL [Suspect]
     Active Substance: BEZAFIBRATE
     Dosage: 450 MG, BID
     Route: 048
     Dates: start: 20111209, end: 20111228
  27. VALIXA [Suspect]
     Active Substance: VALGANCICLOVIR
     Dosage: 450 MG, QD
     Route: 048
     Dates: start: 20110727, end: 20110914
  28. ETHAMBUTOL [Suspect]
     Active Substance: ETHAMBUTOL HYDROCHLORIDE
     Route: 048
  29. EPZICOM [Suspect]
     Active Substance: ABACAVIR SULFATE\LAMIVUDINE
     Indication: HIV INFECTION
     Dosage: 1 DF, UNK
     Route: 048
     Dates: start: 20120111, end: 20150508
  30. LIPIDIL [Suspect]
     Active Substance: FENOFIBRATE
     Dosage: UNK
     Route: 048
     Dates: start: 201306
  31. VALIXA [Suspect]
     Active Substance: VALGANCICLOVIR
     Dosage: 900 MG, BID
     Route: 048
     Dates: start: 20110929, end: 20111004

REACTIONS (10)
  - Hyponatraemia [Recovered/Resolved]
  - Osteoporosis [Not Recovered/Not Resolved]
  - Sinusitis [Recovering/Resolving]
  - Eosinophilic pustular folliculitis [Recovering/Resolving]
  - Diabetes mellitus [Recovering/Resolving]
  - Hyperuricaemia [Recovering/Resolving]
  - Back pain [Recovering/Resolving]
  - Renal impairment [Not Recovered/Not Resolved]
  - Hyperlipidaemia [Recovering/Resolving]
  - Diabetic neuropathy [Recovering/Resolving]

NARRATIVE: CASE EVENT DATE: 20111216
